FAERS Safety Report 20187798 (Version 1)
Quarter: 2021Q4

REPORT INFORMATION
  Report Type: Spontaneous
  Country: US (occurrence: None)
  Receive Date: 20211215
  Receipt Date: 20211215
  Transmission Date: 20220304
  Serious: Yes (Hospitalization)
  Sender: FDA-Public Use
  Company Number: None

PATIENT
  Age: 60 Year
  Sex: Female
  Weight: 77.9 kg

DRUGS (6)
  1. BINIMETINIB [Suspect]
     Active Substance: BINIMETINIB
     Dates: end: 20211206
  2. ENCORAFENIB [Suspect]
     Active Substance: ENCORAFENIB
     Dates: end: 20211206
  3. NIVOLUMAB [Suspect]
     Active Substance: NIVOLUMAB
     Dates: end: 20211109
  4. NIVOLUMAB [Suspect]
     Active Substance: NIVOLUMAB
  5. NIVOLUMAB [Suspect]
     Active Substance: NIVOLUMAB
  6. NIVOLUMAB [Suspect]
     Active Substance: NIVOLUMAB

REACTIONS (7)
  - Dyspnoea [None]
  - Cough [None]
  - Hypotension [None]
  - Asthenia [None]
  - Sepsis [None]
  - Atypical pneumonia [None]
  - Pulmonary oedema [None]

NARRATIVE: CASE EVENT DATE: 20211208
